FAERS Safety Report 13819346 (Version 1)
Quarter: 2017Q3

REPORT INFORMATION
  Report Type: Report from Study
  Country: US (occurrence: US)
  Receive Date: 20170731
  Receipt Date: 20170731
  Transmission Date: 20171127
  Serious: No
  Sender: FDA-Public Use
  Company Number: US-EXELIXIS-CABO-17008180

PATIENT
  Sex: Female

DRUGS (2)
  1. CABOMETYX [Suspect]
     Active Substance: CABOZANTINIB S-MALATE
     Indication: RENAL CANCER
     Dosage: 60 MG, QD
     Route: 048
     Dates: end: 201610
  2. CABOMETYX [Suspect]
     Active Substance: CABOZANTINIB S-MALATE
     Indication: RETROPERITONEAL CANCER

REACTIONS (5)
  - Blood pressure increased [Unknown]
  - Blister [Unknown]
  - Nausea [Unknown]
  - Glossodynia [Unknown]
  - Vomiting [Unknown]
